FAERS Safety Report 5243938-8 (Version None)
Quarter: 2007Q1

REPORT INFORMATION
  Report Type: 
  Country: None (occurrence: None)
  Receive Date: 20070220
  Receipt Date: 20070220
  Transmission Date: 20070707
  Serious: Yes (Other)
  Sender: FDA-Public Use
  Company Number: None

PATIENT
  Age: 36 Year
  Sex: Female
  Weight: 99.7913 kg

DRUGS (1)
  1. FLAGYL [Suspect]
     Indication: POST PROCEDURAL INFECTION
     Dosage: 500  BID PO
     Route: 048
     Dates: start: 20070212, end: 20070214

REACTIONS (3)
  - DYSGEUSIA [None]
  - EXPOSURE TO TOXIC AGENT [None]
  - VOMITING [None]
